FAERS Safety Report 8539515-3 (Version None)
Quarter: 2012Q3

REPORT INFORMATION
  Report Type: 
  Country: None (occurrence: None)
  Receive Date: 20120726
  Receipt Date: 20120720
  Transmission Date: 20120928
  Serious: Yes (Other)
  Sender: FDA-Public Use
  Company Number: JP-B.I. PHARMACEUTICALS,INC./RIDGEFIELD-2012-EU-03480GD

PATIENT
  Age: 71 Year
  Sex: Female

DRUGS (5)
  1. RABEPRAZOLE SODIUM [Concomitant]
     Route: 048
  2. TICLOPIDINE HCL [Concomitant]
     Route: 048
  3. HEPARIN [Suspect]
     Dosage: 10000 U
     Route: 042
  4. PRADAXA [Suspect]
     Indication: ATRIAL FIBRILLATION
     Dosage: 220 MG
  5. HEPARIN [Suspect]
     Dosage: TO MAINTAIN AN ACTIVATED CLOTTING TIME OF 300 TO 350 S DURING THE PROCEDURE
     Route: 042

REACTIONS (1)
  - EMBOLIC CEREBRAL INFARCTION [None]
